FAERS Safety Report 7457958-6 (Version None)
Quarter: 2011Q2

REPORT INFORMATION
  Report Type: 
  Country: None (occurrence: None)
  Receive Date: 20110504
  Receipt Date: 20110503
  Transmission Date: 20111010
  Serious: Yes (Hospitalization)
  Sender: FDA-Public Use
  Company Number: DE-ABBOTT-10P-062-0681329-00

PATIENT
  Sex: Male
  Weight: 86 kg

DRUGS (2)
  1. HUMIRA [Suspect]
     Indication: RHEUMATOID ARTHRITIS
     Route: 058
     Dates: start: 20060401
  2. NON STEROIDAL ANTIRHEUMATICUM [Concomitant]
     Indication: RHEUMATOID ARTHRITIS

REACTIONS (1)
  - OSTEOARTHRITIS [None]
